FAERS Safety Report 15495699 (Version 1)
Quarter: 2018Q4

REPORT INFORMATION
  Report Type: Spontaneous
  Country: CN (occurrence: CN)
  Receive Date: 20181013
  Receipt Date: 20181013
  Transmission Date: 20190205
  Serious: Yes (Hospitalization)
  Sender: FDA-Public Use
  Company Number: PHHY2018CN117944

PATIENT
  Age: 58 Year
  Sex: Male

DRUGS (3)
  1. PREDNISONE. [Suspect]
     Active Substance: PREDNISONE
     Indication: NEPHROTIC SYNDROME
     Dosage: 20 MG, QD
     Route: 065
  2. CEFDINIR. [Suspect]
     Active Substance: CEFDINIR
     Indication: PRODUCT USED FOR UNKNOWN INDICATION
     Route: 065
  3. INSULIN [Suspect]
     Active Substance: INSULIN NOS
     Indication: PRODUCT USED FOR UNKNOWN INDICATION
     Route: 065

REACTIONS (10)
  - Retinal haemorrhage [Recovered/Resolved]
  - Pneumonia [Unknown]
  - Productive cough [Unknown]
  - Night sweats [Unknown]
  - Visual impairment [Recovered/Resolved]
  - Endophthalmitis [Unknown]
  - Nocardiosis [Recovered/Resolved]
  - Pyrexia [Unknown]
  - Diabetes mellitus [Unknown]
  - Brain abscess [Recovered/Resolved]
